FAERS Safety Report 9476245 (Version 1)
Quarter: 2013Q3

REPORT INFORMATION
  Report Type: Spontaneous
  Country: US (occurrence: US)
  Receive Date: 20130826
  Receipt Date: 20130826
  Transmission Date: 20140515
  Serious: No
  Sender: FDA-Public Use
  Company Number: US-JNJFOC-20130808025

PATIENT
  Sex: Male
  Weight: 90.72 kg

DRUGS (2)
  1. DURAGESIC [Suspect]
     Indication: BACK PAIN
     Route: 062
     Dates: start: 20130610, end: 20130807
  2. DURAGESIC [Suspect]
     Indication: BACK PAIN
     Route: 062
     Dates: start: 20130808

REACTIONS (4)
  - Poor quality drug administered [Not Recovered/Not Resolved]
  - Product quality issue [Unknown]
  - Drug ineffective [Not Recovered/Not Resolved]
  - Wrong technique in drug usage process [Not Recovered/Not Resolved]
